FAERS Safety Report 5736216-1 (Version None)
Quarter: 2008Q2

REPORT INFORMATION
  Report Type: 
  Country: None (occurrence: None)
  Receive Date: 20080513
  Receipt Date: 20080509
  Transmission Date: 20081010
  Serious: Yes (Other)
  Sender: FDA-Public Use
  Company Number: PT-MERCK-0805PRT00006

PATIENT
  Age: 38 Year
  Sex: Female

DRUGS (9)
  1. ISENTRESS [Suspect]
     Indication: HIV INFECTION
     Route: 048
     Dates: start: 20080410, end: 20080425
  2. TIPRANAVIR [Concomitant]
     Indication: HIV INFECTION
     Route: 048
     Dates: start: 20080410, end: 20080425
  3. TIPRANAVIR [Concomitant]
     Route: 048
     Dates: start: 20080430
  4. RITONAVIR [Concomitant]
     Indication: HIV INFECTION
     Route: 048
     Dates: start: 20080410, end: 20080425
  5. RITONAVIR [Concomitant]
     Route: 048
     Dates: start: 20080430
  6. LAMIVUDINE AND ZIDOVUDINE [Concomitant]
     Indication: HIV INFECTION
     Route: 048
     Dates: start: 20080410, end: 20080425
  7. LAMIVUDINE AND ZIDOVUDINE [Concomitant]
     Route: 048
     Dates: start: 20080430
  8. DIDANOSINE [Concomitant]
     Indication: HIV INFECTION
     Route: 048
     Dates: start: 20080410, end: 20080425
  9. DIDANOSINE [Concomitant]
     Route: 048
     Dates: start: 20080430

REACTIONS (1)
  - URTICARIA [None]
